FAERS Safety Report 6131942-7 (Version None)
Quarter: 2009Q1

REPORT INFORMATION
  Report Type: 
  Country: None (occurrence: None)
  Receive Date: 20090325
  Receipt Date: 20080513
  Transmission Date: 20090719
  Serious: Yes (Other)
  Sender: FDA-Public Use
  Company Number: ZA-AVENTIS-200814397GDDC

PATIENT
  Sex: Male

DRUGS (7)
  1. LANTUS [Suspect]
     Route: 058
  2. CALCICARD SR [Suspect]
     Route: 048
  3. ZETOMAX [Suspect]
     Route: 048
  4. HUMALOG [Concomitant]
     Dosage: DOSE: 8-8-15
     Route: 058
  5. SIMVACOR [Concomitant]
  6. ASPIRIN [Concomitant]
  7. ISORDIL [Concomitant]

REACTIONS (3)
  - DRUG INTERACTION [None]
  - HYPERGLYCAEMIA [None]
  - HYPOGLYCAEMIC COMA [None]
